FAERS Safety Report 6812535-2 (Version None)
Quarter: 2010Q3

REPORT INFORMATION
  Report Type: 
  Country: None (occurrence: None)
  Receive Date: 20100701
  Receipt Date: 20100621
  Transmission Date: 20110219
  Serious: Yes (Other)
  Sender: FDA-Public Use
  Company Number: US-PFIZER INC-2010078034

PATIENT
  Sex: Female
  Weight: 86.168 kg

DRUGS (2)
  1. CHANTIX [Suspect]
     Indication: SMOKING CESSATION THERAPY
     Dosage: 0.5 MG, 1X/DAY
     Route: 048
     Dates: start: 20100501
  2. VALSARTAN [Concomitant]
     Dosage: 80 MG, DAILY
     Route: 048
     Dates: start: 20100330

REACTIONS (3)
  - ABDOMINAL DISCOMFORT [None]
  - ARTERIAL OCCLUSIVE DISEASE [None]
  - MALAISE [None]
